FAERS Safety Report 4510972-2 (Version None)
Quarter: 2004Q4

REPORT INFORMATION
  Report Type: 
  Country: None (occurrence: None)
  Receive Date: 20040928
  Receipt Date: 20040604
  Transmission Date: 20050328
  Serious: No
  Sender: FDA-Public Use
  Company Number: 04P-163-0262772-00

PATIENT
  Age: 8 Year
  Sex: Female
  Weight: 23.587 kg

DRUGS (1)
  1. HUMIRA [Suspect]
     Indication: CROHN'S DISEASE
     Dosage: 40 MG, 1 IN 2 WK, SUBCUTANEOUS
     Route: 058
     Dates: start: 20040104

REACTIONS (2)
  - INJECTION SITE BURNING [None]
  - INJECTION SITE PAIN [None]
